FAERS Safety Report 19078443 (Version 1)
Quarter: 2021Q1

REPORT INFORMATION
  Report Type: Other
  Country: CN (occurrence: CN)
  Receive Date: 20210331
  Receipt Date: 20210331
  Transmission Date: 20210420
  Serious: Yes (Other)
  Sender: FDA-Public Use
  Company Number: CN-ROCHE-2795152

PATIENT

DRUGS (6)
  1. TRASTUZUMAB. [Suspect]
     Active Substance: TRASTUZUMAB
     Dosage: ON DAY 1, REPEATED EVERY 3 WEEKS
     Route: 041
  2. FLUOROURACIL. [Suspect]
     Active Substance: FLUOROURACIL
     Indication: HER2 POSITIVE GASTRIC CANCER
     Route: 042
  3. DOCETAXEL. [Suspect]
     Active Substance: DOCETAXEL
     Indication: HER2 POSITIVE GASTRIC CANCER
     Route: 041
  4. OXALIPLATIN. [Suspect]
     Active Substance: OXALIPLATIN
     Indication: HER2 POSITIVE GASTRIC CANCER
     Dosage: 2 HOURS
     Route: 041
  5. LEUCOVORINE [Suspect]
     Active Substance: LEUCOVORIN
     Indication: HER2 POSITIVE GASTRIC CANCER
     Route: 041
  6. TRASTUZUMAB. [Suspect]
     Active Substance: TRASTUZUMAB
     Indication: HER2 POSITIVE GASTRIC CANCER
     Dosage: INITIAL DOSE
     Route: 041

REACTIONS (15)
  - Vomiting [Unknown]
  - Abdominal infection [Unknown]
  - Thrombocytopenia [Unknown]
  - Neurotoxicity [Unknown]
  - Anaemia [Unknown]
  - Impaired healing [Unknown]
  - Nausea [Unknown]
  - Fatigue [Unknown]
  - Neutropenia [Unknown]
  - Febrile neutropenia [Unknown]
  - Mucosal inflammation [Unknown]
  - Diarrhoea [Unknown]
  - Hypersensitivity [Unknown]
  - Haematotoxicity [Unknown]
  - Gastrointestinal toxicity [Unknown]
